FAERS Safety Report 19640315 (Version 1)
Quarter: 2021Q3

REPORT INFORMATION
  Report Type: Report from Study
  Country: US (occurrence: US)
  Receive Date: 20210730
  Receipt Date: 20210730
  Transmission Date: 20211014
  Serious: Yes (Other)
  Sender: FDA-Public Use
  Company Number: US-UCBSA-2021035663

PATIENT
  Sex: Female
  Weight: 2.22 kg

DRUGS (12)
  1. FOSPHENYTOIN [Suspect]
     Active Substance: FOSPHENYTOIN
     Indication: PRODUCT USED FOR UNKNOWN INDICATION
     Dosage: 40MG, 10MG, 20MG
     Route: 042
     Dates: start: 20190210, end: 20190211
  2. LEVETIRACETAM. [Suspect]
     Active Substance: LEVETIRACETAM
     Indication: SEIZURE
     Dosage: 99 MILLIGRAM, UNK
     Route: 042
     Dates: start: 20190210, end: 20190210
  3. THIAMINE. [Concomitant]
     Active Substance: THIAMINE
     Indication: PRODUCT USED FOR UNKNOWN INDICATION
     Dosage: 50 MILLIGRAM, 2X/DAY (BID)
     Route: 042
     Dates: start: 20190208, end: 20190225
  4. PHENOBARBITAL. [Suspect]
     Active Substance: PHENOBARBITAL
     Dosage: 9.75 MILLIGRAM, ONCE DAILY (QD)
     Route: 042
     Dates: start: 20190210, end: 20190210
  5. DEXTROSE. [Concomitant]
     Active Substance: DEXTROSE
     Indication: PRODUCT USED FOR UNKNOWN INDICATION
     Dosage: UNK
  6. PHENOBARBITAL. [Suspect]
     Active Substance: PHENOBARBITAL
     Dosage: 20.15 MILLIGRAM, ONCE DAILY (QD)
     Route: 042
     Dates: start: 20190210, end: 20190210
  7. PHENOBARBITAL. [Suspect]
     Active Substance: PHENOBARBITAL
     Dosage: 9.75 MILLIGRAM, ONCE DAILY (QD)
     Route: 042
     Dates: start: 20190211, end: 20190211
  8. SODIUM BICARBONATE. [Concomitant]
     Active Substance: SODIUM BICARBONATE
     Indication: PRODUCT USED FOR UNKNOWN INDICATION
     Dosage: 1000ML
     Route: 042
     Dates: start: 20190210, end: 20190211
  9. DOPAMINE [Concomitant]
     Active Substance: DOPAMINE HYDROCHLORIDE
     Indication: PRODUCT USED FOR UNKNOWN INDICATION
     Dosage: UNK
  10. LEVETIRACETAM. [Suspect]
     Active Substance: LEVETIRACETAM
     Indication: STATUS EPILEPTICUS
  11. MIDAZOLAM. [Suspect]
     Active Substance: MIDAZOLAM
     Indication: PRODUCT USED FOR UNKNOWN INDICATION
     Dosage: D5W 1MG/ML, 50 ML INFUSION
     Route: 042
     Dates: start: 20190210, end: 20190211
  12. PHENOBARBITAL. [Suspect]
     Active Substance: PHENOBARBITAL
     Indication: PRODUCT USED FOR UNKNOWN INDICATION
     Dosage: 40.3 MILLIGRAM, ONCE DAILY (QD)
     Route: 042
     Dates: start: 20190209, end: 20190210

REACTIONS (8)
  - Respiratory depression [Recovered/Resolved]
  - Hyperammonaemia [Unknown]
  - Seizure [Unknown]
  - Hypotension [Recovered/Resolved]
  - Encephalopathy [Unknown]
  - Lactic acidosis [Unknown]
  - Product use issue [Unknown]
  - Drug ineffective [Unknown]

NARRATIVE: CASE EVENT DATE: 20190210
